FAERS Safety Report 9855921 (Version 2)
Quarter: 2014Q1

REPORT INFORMATION
  Report Type: Spontaneous
  Country: AU (occurrence: AU)
  Receive Date: 20140130
  Receipt Date: 20140130
  Transmission Date: 20141002
  Serious: Yes (Other)
  Sender: FDA-Public Use
  Company Number: PHHY2014AU004966

PATIENT
  Age: 69 Year
  Sex: Male

DRUGS (3)
  1. EXFORGE [Suspect]
     Dosage: 1 DF (160 MG VALS/ 5 MG AMLO), DAILY
     Route: 048
     Dates: start: 2011
  2. NORVASC [Concomitant]
  3. TRITACE [Concomitant]

REACTIONS (2)
  - Diabetes mellitus [Unknown]
  - Fatigue [Unknown]
